FAERS Safety Report 23139593 (Version 1)
Quarter: 2023Q4

REPORT INFORMATION
  Report Type: Spontaneous
  Country: US (occurrence: None)
  Receive Date: 20231102
  Receipt Date: 20231102
  Transmission Date: 20240110
  Serious: Yes (Life-Threatening, Hospitalization)
  Sender: FDA-Public Use
  Company Number: None

PATIENT
  Sex: Female

DRUGS (1)
  1. CYPROHEPTADINE [Suspect]
     Active Substance: CYPROHEPTADINE
     Indication: Weight increased

REACTIONS (6)
  - Vomiting [None]
  - Abnormal behaviour [None]
  - Nausea [None]
  - Hyperhidrosis [None]
  - Product use in unapproved indication [None]
  - Tremor [None]

NARRATIVE: CASE EVENT DATE: 20231019
